FAERS Safety Report 14604992 (Version 4)
Quarter: 2018Q2

REPORT INFORMATION
  Report Type: Spontaneous
  Country: JP (occurrence: JP)
  Receive Date: 20180306
  Receipt Date: 20180514
  Transmission Date: 20180711
  Serious: Yes (Other)
  Sender: FDA-Public Use
  Company Number: JP-SHIRE-JP201807916

PATIENT

DRUGS (2)
  1. ACETAMINOPHEN. [Concomitant]
     Active Substance: ACETAMINOPHEN
     Indication: PRODUCT USED FOR UNKNOWN INDICATION
  2. INTUNIV [Suspect]
     Active Substance: GUANFACINE HYDROCHLORIDE
     Indication: ATTENTION DEFICIT/HYPERACTIVITY DISORDER
     Dosage: 1 MG, 1X/DAY:QD
     Route: 048
     Dates: start: 20180104, end: 20180131

REACTIONS (5)
  - Hypotension [Unknown]
  - Headache [Unknown]
  - Somnolence [Recovered/Resolved]
  - Oedema peripheral [Unknown]
  - Hypothermia [Recovered/Resolved]

NARRATIVE: CASE EVENT DATE: 20180104
